FAERS Safety Report 24085660 (Version 3)
Quarter: 2024Q3

REPORT INFORMATION
  Report Type: Report from Study
  Country: US (occurrence: US)
  Receive Date: 20240712
  Receipt Date: 20240802
  Transmission Date: 20241017
  Serious: Yes (Death, Hospitalization)
  Sender: BAYER
  Company Number: US-BAYER-2024A098360

PATIENT
  Age: 62 Year
  Sex: Female
  Weight: 46.712 kg

DRUGS (33)
  1. ADEMPAS [Suspect]
     Active Substance: RIOCIGUAT
     Indication: Pulmonary arterial hypertension
     Dosage: 0.5 MG, TID
     Route: 048
     Dates: start: 20240403, end: 2024
  2. REMODULIN [Suspect]
     Active Substance: TREPROSTINIL
     Indication: Pulmonary hypertension
     Dosage: 0.040 ?G/KG
     Route: 042
     Dates: start: 20230803
  3. REMODULIN [Suspect]
     Active Substance: TREPROSTINIL
     Indication: Pulmonary hypertension
     Dosage: 0.050 ?G/KG
     Route: 042
  4. FUROSEMIDE [Concomitant]
     Active Substance: FUROSEMIDE
  5. MYCOPHENOLATE MOFETIL [Concomitant]
     Active Substance: MYCOPHENOLATE MOFETIL
  6. COENZYME Q10 [Concomitant]
     Active Substance: DIETARY SUPPLEMENT\UBIDECARENONE
  7. ROSUVASTATIN CALCIUM [Concomitant]
     Active Substance: ROSUVASTATIN CALCIUM
  8. HEPARIN [Concomitant]
     Active Substance: HEPARIN SODIUM
  9. SODIUM CHLORIDE [Concomitant]
     Active Substance: SODIUM CHLORIDE
  10. MAGNESIUM [Concomitant]
     Active Substance: MAGNESIUM
  11. AMLODIPINE BESYLATE [Concomitant]
     Active Substance: AMLODIPINE BESYLATE
  12. PANTOPRAZOLE SODIUM [Concomitant]
     Active Substance: PANTOPRAZOLE SODIUM
  13. LASIX [Concomitant]
     Active Substance: FUROSEMIDE
  14. POTASSIUM CHLORIDE [Concomitant]
     Active Substance: POTASSIUM CHLORIDE
  15. FLUTICASONE PROPIONATE\SALMETEROL XINAFOATE [Concomitant]
     Active Substance: FLUTICASONE PROPIONATE\SALMETEROL XINAFOATE
  16. LEVOTHYROXINE SODIUM [Concomitant]
     Active Substance: LEVOTHYROXINE SODIUM
  17. ALBUTEROL SULFATE [Concomitant]
     Active Substance: ALBUTEROL SULFATE
  18. ALLOPURINOL [Concomitant]
     Active Substance: ALLOPURINOL
  19. VITAMINS [Concomitant]
     Active Substance: VITAMINS
  20. FLUTICASONE PROPIONATE [Concomitant]
     Active Substance: FLUTICASONE PROPIONATE
  21. DELSYM [Concomitant]
     Active Substance: DEXTROMETHORPHAN
  22. GABAPENTIN [Concomitant]
     Active Substance: GABAPENTIN
  23. ACETAMINOPHEN [Concomitant]
     Active Substance: ACETAMINOPHEN
  24. ASPIRIN [Concomitant]
     Active Substance: ASPIRIN
  25. SPIRONOLACTONE [Concomitant]
     Active Substance: SPIRONOLACTONE
  26. ZINC [Concomitant]
     Active Substance: ZINC
  27. OXYGEN [Concomitant]
     Active Substance: OXYGEN
  28. DIGOXIN [Concomitant]
     Active Substance: DIGOXIN
  29. HYDROXYZINE HYDROCHLORIDE [Concomitant]
     Active Substance: HYDROXYZINE HYDROCHLORIDE
  30. TRAZODONE HCL [Concomitant]
     Active Substance: TRAZODONE HYDROCHLORIDE
  31. ONDANSETRON HYDROCHLORIDE [Concomitant]
     Active Substance: ONDANSETRON HYDROCHLORIDE
  32. Hair skin nails [Concomitant]
  33. OPSUMIT [Concomitant]
     Active Substance: MACITENTAN

REACTIONS (6)
  - Death [Fatal]
  - Cardiac failure [None]
  - Renal failure [None]
  - Lung disorder [None]
  - Abdominal pain [None]
  - Oedema peripheral [None]

NARRATIVE: CASE EVENT DATE: 20240627
